FAERS Safety Report 6757206-6 (Version None)
Quarter: 2010Q2

REPORT INFORMATION
  Report Type: 
  Country: None (occurrence: None)
  Receive Date: 20100607
  Receipt Date: 20100525
  Transmission Date: 20101027
  Serious: Yes (Other)
  Sender: FDA-Public Use
  Company Number: US-BIOGENIDEC-2010BI017149

PATIENT
  Age: 43 Year
  Sex: Female
  Weight: 104 kg

DRUGS (6)
  1. AVONEX [Suspect]
     Indication: MULTIPLE SCLEROSIS
     Route: 030
     Dates: start: 20051116
  2. METOPROLOL TARTRATE [Concomitant]
     Indication: HYPERTENSION
     Route: 048
     Dates: start: 20040101
  3. HYDROCHLOROTHIAZIDE [Concomitant]
     Indication: HYPERTENSION
     Route: 048
  4. LISINOPRIL [Concomitant]
     Indication: HYPERTENSION
     Route: 048
  5. TRILIPIX [Concomitant]
     Indication: BLOOD TRIGLYCERIDES INCREASED
     Route: 048
  6. METFORMIN [Concomitant]
     Indication: DIABETES MELLITUS
     Route: 048
     Dates: start: 20040101

REACTIONS (9)
  - ARTHROPOD BITE [None]
  - BREAST CELLULITIS [None]
  - BREAST PAIN [None]
  - FUNGAL INFECTION [None]
  - OPTIC NEURITIS [None]
  - PANIC ATTACK [None]
  - STRESS [None]
  - VISUAL IMPAIRMENT [None]
  - WOUND ABSCESS [None]
